FAERS Safety Report 9262920 (Version 2)
Quarter: 2013Q4

REPORT INFORMATION
  Report Type: Spontaneous
  Country: FR (occurrence: FR)
  Receive Date: 20130430
  Receipt Date: 20131010
  Transmission Date: 20140711
  Serious: Yes (Other)
  Sender: FDA-Public Use
  Company Number: FR-ASTELLAS-2013EU003797

PATIENT
  Age: 43 Year
  Sex: Male
  Weight: 74 kg

DRUGS (6)
  1. PROGRAF [Suspect]
     Indication: PROPHYLAXIS AGAINST TRANSPLANT REJECTION
     Dosage: 3 MG, BID
     Route: 048
     Dates: start: 19981021, end: 20120329
  2. CELLCEPT                           /01275102/ [Concomitant]
     Indication: PROPHYLAXIS AGAINST TRANSPLANT REJECTION
     Dosage: 500 MG, BID
     Route: 048
     Dates: start: 19981021
  3. PERINDOPRIL [Concomitant]
     Indication: HYPERTENSION
     Dosage: 8 MG, UID/QD
     Route: 048
     Dates: start: 20030114
  4. BECILAN [Concomitant]
     Indication: HYPERHOMOCYSTEINAEMIA
     Dosage: 250 MG, UID/QD
     Route: 048
     Dates: start: 19981021
  5. AMLOR [Concomitant]
     Indication: HYPERTENSION
     Dosage: 5 MG, UID/QD
     Route: 048
     Dates: start: 20031220
  6. ASPEGIC                            /00002703/ [Concomitant]
     Indication: THROMBOSIS PROPHYLAXIS
     Dosage: 100 MG, UID/QD
     Route: 048
     Dates: start: 19990512

REACTIONS (3)
  - Actinic keratosis [Recovering/Resolving]
  - Infection susceptibility increased [Unknown]
  - Solar dermatitis [Unknown]
